APPROVED DRUG PRODUCT: TIMENTIN
Active Ingredient: CLAVULANATE POTASSIUM; TICARCILLIN DISODIUM
Strength: EQ 100MG BASE/VIAL;EQ 3GM BASE/VIAL
Dosage Form/Route: INJECTABLE;INJECTION
Application: A062691 | Product #001
Applicant: GLAXOSMITHKLINE INTELLECTUAL PROPERTY NO 2 LTD ENGLAND
Approved: Dec 19, 1986 | RLD: No | RS: No | Type: DISCN